FAERS Safety Report 18888912 (Version 1)
Quarter: 2021Q1

REPORT INFORMATION
  Report Type: Spontaneous
  Country: JP (occurrence: JP)
  Receive Date: 20210212
  Receipt Date: 20210212
  Transmission Date: 20210420
  Serious: Yes (Hospitalization, Other)
  Sender: FDA-Public Use
  Company Number: JP-VALIDUS PHARMACEUTICALS LLC-JP-2021VAL000071

PATIENT
  Age: 84 Year
  Sex: Male

DRUGS (2)
  1. LASIX [Suspect]
     Active Substance: FUROSEMIDE
     Indication: CHRONIC KIDNEY DISEASE
     Dosage: 20 TO 40 MG/DAY FOR APPROXIMATELY 4 YEARS
     Route: 065
  2. LASIX [Suspect]
     Active Substance: FUROSEMIDE
     Dosage: 80 MG, QD
     Route: 065

REACTIONS (8)
  - Oliguria [Unknown]
  - Weight decreased [Unknown]
  - Cardiac failure high output [Unknown]
  - Shoshin beriberi [Unknown]
  - Dyspnoea exertional [Unknown]
  - Acute kidney injury [Unknown]
  - Acute pulmonary oedema [Unknown]
  - Vitamin B1 deficiency [Unknown]
